FAERS Safety Report 4781569-4 (Version None)
Quarter: 2005Q3

REPORT INFORMATION
  Report Type: 
  Country: None (occurrence: None)
  Receive Date: 20050927
  Receipt Date: 20050913
  Transmission Date: 20060218
  Serious: Yes (Disabling)
  Sender: FDA-Public Use
  Company Number: 02100-JPN-05-0453

PATIENT
  Age: 81 Year
  Sex: Male

DRUGS (7)
  1. CILOSTAZOL [Suspect]
     Indication: CEREBRAL INFARCTION
     Dosage: 400 MG
     Route: 048
     Dates: start: 20050301, end: 20050829
  2. WARFARIN POTASSIUM [Suspect]
     Indication: ATRIAL FIBRILLATION
     Dosage: 1 MG
     Route: 048
     Dates: start: 20050301, end: 20050829
  3. METILDIGOXIN [Concomitant]
  4. TICLOPIDINE HYDROCHLORIDE [Concomitant]
  5. LOSARTAN POTASSIUM [Concomitant]
  6. DIASTASE NATURAL AGENTS COMBINED DRUG [Concomitant]
  7. MOLSIN COMBINED DRUG [Concomitant]

REACTIONS (6)
  - ANOREXIA [None]
  - BLOOD LACTATE DEHYDROGENASE INCREASED [None]
  - JAUNDICE [None]
  - OEDEMA PERIPHERAL [None]
  - PERNICIOUS ANAEMIA [None]
  - PLATELET COUNT DECREASED [None]
